FAERS Safety Report 25174694 (Version 2)
Quarter: 2025Q2

REPORT INFORMATION
  Report Type: Spontaneous
  Country: PL (occurrence: PL)
  Receive Date: 20250408
  Receipt Date: 20250417
  Transmission Date: 20250716
  Serious: Yes (Death, Other)
  Sender: PFIZER
  Company Number: PL-MLMSERVICE-20250327-PI459426-00082-1

PATIENT
  Age: 14 Year
  Sex: Female

DRUGS (22)
  1. ADRIAMYCIN [Suspect]
     Active Substance: DOXORUBICIN HYDROCHLORIDE
     Indication: Embryonal rhabdomyosarcoma
  2. ADRIAMYCIN [Suspect]
     Active Substance: DOXORUBICIN HYDROCHLORIDE
     Indication: Alveolar rhabdomyosarcoma
  3. CARBOPLATIN [Suspect]
     Active Substance: CARBOPLATIN
     Indication: Embryonal rhabdomyosarcoma
  4. CARBOPLATIN [Suspect]
     Active Substance: CARBOPLATIN
     Indication: Alveolar rhabdomyosarcoma
  5. EPIRUBICIN HYDROCHLORIDE [Suspect]
     Active Substance: EPIRUBICIN HYDROCHLORIDE
     Indication: Embryonal rhabdomyosarcoma
  6. EPIRUBICIN HYDROCHLORIDE [Suspect]
     Active Substance: EPIRUBICIN HYDROCHLORIDE
     Indication: Alveolar rhabdomyosarcoma
  7. ACTINOMYCIN D [Suspect]
     Active Substance: DACTINOMYCIN
     Indication: Embryonal rhabdomyosarcoma
  8. ACTINOMYCIN D [Suspect]
     Active Substance: DACTINOMYCIN
     Indication: Alveolar rhabdomyosarcoma
  9. CISPLATIN [Suspect]
     Active Substance: CISPLATIN
     Indication: Embryonal rhabdomyosarcoma
  10. CISPLATIN [Suspect]
     Active Substance: CISPLATIN
     Indication: Alveolar rhabdomyosarcoma
  11. CYCLOPHOSPHAMIDE [Suspect]
     Active Substance: CYCLOPHOSPHAMIDE
     Indication: Embryonal rhabdomyosarcoma
  12. CYCLOPHOSPHAMIDE [Suspect]
     Active Substance: CYCLOPHOSPHAMIDE
     Indication: Alveolar rhabdomyosarcoma
  13. ETOPOSIDE [Suspect]
     Active Substance: ETOPOSIDE
     Indication: Embryonal rhabdomyosarcoma
  14. ETOPOSIDE [Suspect]
     Active Substance: ETOPOSIDE
     Indication: Alveolar rhabdomyosarcoma
  15. IFOSFAMIDE [Suspect]
     Active Substance: IFOSFAMIDE
     Indication: Embryonal rhabdomyosarcoma
  16. IFOSFAMIDE [Suspect]
     Active Substance: IFOSFAMIDE
     Indication: Alveolar rhabdomyosarcoma
  17. TOPOTECAN [Suspect]
     Active Substance: TOPOTECAN HYDROCHLORIDE
     Indication: Embryonal rhabdomyosarcoma
  18. TOPOTECAN [Suspect]
     Active Substance: TOPOTECAN HYDROCHLORIDE
     Indication: Alveolar rhabdomyosarcoma
  19. VINCRISTINE [Suspect]
     Active Substance: VINCRISTINE
     Indication: Embryonal rhabdomyosarcoma
  20. VINCRISTINE [Suspect]
     Active Substance: VINCRISTINE
     Indication: Alveolar rhabdomyosarcoma
  21. VINBLASTINE [Suspect]
     Active Substance: VINBLASTINE
     Indication: Embryonal rhabdomyosarcoma
  22. VINBLASTINE [Suspect]
     Active Substance: VINBLASTINE
     Indication: Alveolar rhabdomyosarcoma

REACTIONS (3)
  - Pneumonia fungal [Fatal]
  - Metastases to bone [Unknown]
  - Off label use [Unknown]
